FAERS Safety Report 5794261-4 (Version None)
Quarter: 2008Q2

REPORT INFORMATION
  Report Type: 
  Country: None (occurrence: None)
  Receive Date: 20080627
  Receipt Date: 20080618
  Transmission Date: 20081010
  Serious: Yes (Other)
  Sender: FDA-Public Use
  Company Number: US-PFIZER INC-2008051635

PATIENT
  Sex: Female

DRUGS (12)
  1. CELEBREX [Suspect]
  2. LIPITOR [Suspect]
     Indication: BLOOD CHOLESTEROL
  3. LYRICA [Suspect]
     Indication: FIBROMYALGIA
  4. PLAVIX [Concomitant]
  5. TOPROL-XL [Concomitant]
  6. TOPAMAX [Concomitant]
  7. NEXIUM [Concomitant]
  8. VICODIN ES [Concomitant]
  9. SOMA [Concomitant]
  10. LIDOCAINE [Concomitant]
     Route: 062
  11. XANAX [Concomitant]
     Indication: INSOMNIA
  12. VIOXX [Concomitant]

REACTIONS (6)
  - CEREBROVASCULAR ACCIDENT [None]
  - CORONARY ARTERY OCCLUSION [None]
  - LOSS OF CONSCIOUSNESS [None]
  - PALPITATIONS [None]
  - RECTAL HAEMORRHAGE [None]
  - WEIGHT INCREASED [None]
